FAERS Safety Report 24074693 (Version 1)
Quarter: 2024Q3

REPORT INFORMATION
  Report Type: Spontaneous
  Country: JP (occurrence: JP)
  Receive Date: 20240710
  Receipt Date: 20240710
  Transmission Date: 20241017
  Serious: No
  Sender: PIERRE FABRE MEDICAMENT
  Company Number: JP-maruho-EVD202303254PFM

PATIENT
  Age: 9 Week
  Sex: Female
  Weight: 6.1 kg

DRUGS (3)
  1. PROPRANOLOL HYDROCHLORIDE [Suspect]
     Active Substance: PROPRANOLOL HYDROCHLORIDE
     Indication: Infantile haemangioma
     Dosage: 0.75MLX 2/DAY (1.5ML/DAY)
     Route: 048
     Dates: start: 20230912, end: 20230913
  2. PROPRANOLOL HYDROCHLORIDE [Suspect]
     Active Substance: PROPRANOLOL HYDROCHLORIDE
     Dosage: 1.5ML X2/DAY (3ML/DAY)
     Route: 048
     Dates: start: 20230914, end: 20230915
  3. PROPRANOLOL HYDROCHLORIDE [Suspect]
     Active Substance: PROPRANOLOL HYDROCHLORIDE
     Dosage: 2.25ML X2/DAY (4.5ML/DAY)
     Route: 048
     Dates: start: 20230916, end: 20230925

REACTIONS (1)
  - Asthma [Recovered/Resolved]

NARRATIVE: CASE EVENT DATE: 20230922
